FAERS Safety Report 24224251 (Version 1)
Quarter: 2024Q3

REPORT INFORMATION
  Report Type: Spontaneous
  Country: AU (occurrence: AU)
  Receive Date: 20240819
  Receipt Date: 20240819
  Transmission Date: 20241017
  Serious: Yes (Hospitalization)
  Sender: MERCK
  Company Number: AU-ROCHE-3467150

PATIENT
  Age: 74 Year
  Sex: Female
  Weight: 81.2 kg

DRUGS (22)
  1. PEMBROLIZUMAB [Suspect]
     Active Substance: PEMBROLIZUMAB
     Indication: Non-small cell lung cancer metastatic
     Dosage: UNK, Q3W (DOSE FORM ALSO REPORTED AS INFUSION)
     Route: 042
     Dates: start: 20230620, end: 20230620
  2. PEMBROLIZUMAB [Suspect]
     Active Substance: PEMBROLIZUMAB
     Dosage: UNK, Q3W (DOSE FORM ALSO REPORTED AS INFUSION)
     Route: 042
     Dates: start: 20231003, end: 20231003
  3. TOBEMSTOMIG [Suspect]
     Active Substance: TOBEMSTOMIG
     Indication: Non-small cell lung cancer metastatic
     Dosage: UNK, INTERVAL: 3 WEEK (Q3W)
     Route: 042
     Dates: start: 20230620, end: 20230620
  4. TOBEMSTOMIG [Suspect]
     Active Substance: TOBEMSTOMIG
     Dosage: UNK, INTERVAL: 3 WEEK (Q3W)
     Route: 042
     Dates: start: 20231003, end: 20231003
  5. PEMETREXED [Suspect]
     Active Substance: PEMETREXED
     Indication: Non-small cell lung cancer metastatic
     Dosage: 1000 MILLIGRAM, INTERVAL: 3 WEEK (Q3W)
     Route: 042
     Dates: start: 20230620, end: 20230620
  6. PEMETREXED [Suspect]
     Active Substance: PEMETREXED
     Dosage: 955 MILLIGRAM, Q3W
     Route: 042
     Dates: start: 20231003
  7. CARBOPLATIN [Suspect]
     Active Substance: CARBOPLATIN
     Indication: Non-small cell lung cancer metastatic
     Dosage: 700 MILLIGRAM, INTERVAL: 3 WEEK (Q3W)
     Route: 042
     Dates: start: 20230620, end: 20230620
  8. CARBOPLATIN [Suspect]
     Active Substance: CARBOPLATIN
     Dosage: 597 MILLIGRAM, Q3W
     Route: 042
     Dates: start: 20230822
  9. AKYNZEO (NETUPITANT\PALONOSETRON HYDROCHLORIDE) [Concomitant]
     Active Substance: NETUPITANT\PALONOSETRON HYDROCHLORIDE
     Dosage: DOSE: 300.5 MILLIGRAM, INTERVAL: 1 AS NECESSARY (PRN)
     Route: 048
     Dates: start: 20230620
  10. THYROXINE [Concomitant]
     Active Substance: LEVOTHYROXINE
     Dosage: DOSE: 112.5 MICROGRAM; INTERVAL: 1 AS NECESSARY (PRN); INDICATION: HYPOTHYROIDISM
     Route: 048
     Dates: start: 19931212
  11. THYROXINE [Concomitant]
     Active Substance: LEVOTHYROXINE
     Dosage: DOSE: 75 MICROGRAM; INTERVAL: 1 AS NECESSARY (PRN) (INDICATION NOT REPORTED)
     Route: 048
     Dates: start: 19931212
  12. AMOXICILLIN [Concomitant]
     Active Substance: AMOXICILLIN
     Indication: Duodenal ulcer
     Dosage: 1000 MILLIGRAM, INTERVAL: 1 DAY (QD)
     Route: 048
     Dates: start: 20230707
  13. CLARITHROMYCIN [Concomitant]
     Active Substance: CLARITHROMYCIN
     Indication: Duodenal ulcer
     Dosage: 500 MILLIGRAM, INTERVAL: 1 DAY (QD)
     Route: 048
     Dates: start: 20230706
  14. DENOSUMAB [Concomitant]
     Active Substance: DENOSUMAB
     Indication: Osteoporosis
     Dosage: DOSE: 60 MILLIGRAM, INTERVAL: 1 AS NECESSARY (PRN)
     Route: 058
     Dates: start: 20210901
  15. DEXAMETHASONE [Concomitant]
     Active Substance: DEXAMETHASONE
     Dosage: DOSE: 8 MILLIGRAM, INTERVAL: 1 AS NECESSARY (PRN)
     Route: 048
     Dates: start: 20230620
  16. ESOMEPRAZOLE [Concomitant]
     Active Substance: ESOMEPRAZOLE
     Indication: Duodenal ulcer
     Dosage: 40 MILLIGRAM, INTERVAL: 1 DAY (QD)
     Route: 048
     Dates: start: 20230629
  17. FOLIC ACID [Concomitant]
     Active Substance: FOLIC ACID
     Dosage: 0.5 MILLIGRAM, INTERVAL: 1 DAY (QD)
     Route: 048
     Dates: start: 20230524
  18. LORATADINE [Concomitant]
     Active Substance: LORATADINE
     Dosage: DOSE: 10 MILLIGRAM, INTERVAL: 1 AS NECESSARY (PRN)
     Route: 048
     Dates: start: 20230620
  19. MOMETASONE FUROATE [Concomitant]
     Active Substance: MOMETASONE FUROATE
     Indication: Rash
     Dosage: 2 MILLIGRAM, INTERVAL: 1 DAY (QD)
     Route: 061
     Dates: start: 20230801
  20. PEGFILGRASTIM [Concomitant]
     Active Substance: PEGFILGRASTIM
     Dosage: DOSE: 6 MILLIGRAM; INTERVAL: 1 AS NECESSARY (PRN)
     Route: 058
     Dates: start: 20230621
  21. PREDNISOLONE [Concomitant]
     Active Substance: PREDNISOLONE
     Indication: Pneumonitis
     Dosage: 120 MILLIGRAM, INTERVAL: 1 DAY (QD)
     Route: 048
     Dates: start: 20231024
  22. TELMISARTAN [Concomitant]
     Active Substance: TELMISARTAN
     Indication: Hypertension
     Dosage: 80 MILLIGRAM, INTERVAL: 1 DAY (QD)
     Route: 048
     Dates: start: 20180515

REACTIONS (1)
  - COVID-19 [Not Recovered/Not Resolved]

NARRATIVE: CASE EVENT DATE: 20231128
